FAERS Safety Report 6907865-X (Version None)
Quarter: 2010Q3

REPORT INFORMATION
  Report Type: 
  Country: None (occurrence: None)
  Receive Date: 20100805
  Receipt Date: 20100706
  Transmission Date: 20110219
  Serious: No
  Sender: FDA-Public Use
  Company Number: US-MYLANLABS-2010S1010125

PATIENT
  Age: 40 Year
  Sex: Female
  Weight: 81.65 kg

DRUGS (4)
  1. LAMOTRIGINE [Suspect]
     Indication: MOOD DISORDER DUE TO A GENERAL MEDICAL CONDITION
     Dates: start: 20100207
  2. LAMOTRIGINE [Suspect]
     Indication: BIPOLAR DISORDER
     Dates: start: 20100207
  3. LAMOTRIGINE [Suspect]
  4. LAMOTRIGINE [Suspect]

REACTIONS (7)
  - AGGRESSION [None]
  - CRYING [None]
  - DEPRESSION [None]
  - DYSPHORIA [None]
  - EMOTIONAL DISORDER [None]
  - IRRITABILITY [None]
  - WITHDRAWAL SYNDROME [None]
